FAERS Safety Report 19885281 (Version 5)
Quarter: 2022Q2

REPORT INFORMATION
  Report Type: Report from Study
  Country: JP (occurrence: JP)
  Receive Date: 20210927
  Receipt Date: 20220518
  Transmission Date: 20220721
  Serious: Yes (Hospitalization, Other)
  Sender: FDA-Public Use
  Company Number: JP-TAKEDA-2021TJP080156

PATIENT
  Age: 14 Year
  Sex: Male

DRUGS (10)
  1. ADVATE [Suspect]
     Active Substance: ANTIHEMOPHILIC FACTOR, HUMAN RECOMBINANT
     Indication: Factor VIII deficiency
     Dosage: 2000 UNK, PRN
     Route: 042
     Dates: start: 202102
  2. ADVATE [Suspect]
     Active Substance: ANTIHEMOPHILIC FACTOR, HUMAN RECOMBINANT
     Indication: Factor VIII deficiency
     Dosage: 2000 UNK, PRN
     Route: 042
     Dates: start: 202102
  3. ADVATE [Suspect]
     Active Substance: ANTIHEMOPHILIC FACTOR, HUMAN RECOMBINANT
     Indication: Factor VIII deficiency
     Dosage: 2000 UNK, PRN
     Route: 042
     Dates: start: 202102
  4. ADVATE [Suspect]
     Active Substance: ANTIHEMOPHILIC FACTOR, HUMAN RECOMBINANT
     Indication: Tooth extraction
     Dosage: 2000U WHEN BLEEDING
     Route: 042
     Dates: start: 202108
  5. ADVATE [Suspect]
     Active Substance: ANTIHEMOPHILIC FACTOR, HUMAN RECOMBINANT
     Indication: Tooth extraction
     Dosage: 2000U WHEN BLEEDING
     Route: 042
     Dates: start: 202108
  6. ADVATE [Suspect]
     Active Substance: ANTIHEMOPHILIC FACTOR, HUMAN RECOMBINANT
     Indication: Tooth extraction
     Dosage: 2000U WHEN BLEEDING
     Route: 042
     Dates: start: 202108
  7. ADVATE [Suspect]
     Active Substance: ANTIHEMOPHILIC FACTOR, HUMAN RECOMBINANT
     Dosage: UNK, PRN
     Route: 042
     Dates: start: 20210827, end: 20210827
  8. ADVATE [Suspect]
     Active Substance: ANTIHEMOPHILIC FACTOR, HUMAN RECOMBINANT
     Dosage: UNK, PRN
     Route: 042
     Dates: start: 20210827, end: 20210827
  9. ADVATE [Suspect]
     Active Substance: ANTIHEMOPHILIC FACTOR, HUMAN RECOMBINANT
     Dosage: UNK, PRN
     Route: 042
     Dates: start: 20210827, end: 20210827
  10. Covid-19 vaccine [Concomitant]
     Indication: COVID-19 immunisation
     Dosage: UNK
     Route: 065
     Dates: start: 20220421, end: 20220421

REACTIONS (13)
  - Haemorrhage subcutaneous [Unknown]
  - Tooth extraction [Unknown]
  - Haemorrhage [Unknown]
  - Rhinitis allergic [Unknown]
  - Fall [Unknown]
  - Subcutaneous haematoma [Unknown]
  - Injury [Unknown]
  - Contusion [Unknown]
  - Headache [Recovering/Resolving]
  - Pyrexia [Recovering/Resolving]
  - Viral infection [Unknown]
  - Nasopharyngitis [Unknown]
  - Onychomadesis [Unknown]

NARRATIVE: CASE EVENT DATE: 20210801
